FAERS Safety Report 10037596 (Version 2)
Quarter: 2014Q1

REPORT INFORMATION
  Report Type: Spontaneous
  Country: US (occurrence: None)
  Receive Date: 20140324
  Receipt Date: 20140331
  Transmission Date: 20141002
  Serious: Yes (Hospitalization, Other)
  Sender: FDA-Public Use
  Company Number: UTC-045733

PATIENT
  Age: 66 Year
  Sex: Male
  Weight: 101.6 kg

DRUGS (3)
  1. TYVASO [Suspect]
     Indication: PULMONARY ARTERIAL HYPERTENSION
     Route: 055
     Dates: start: 20140219
  2. SILDENAFIL (SILDENAFIL) [Concomitant]
  3. LETAIRIS (AMBRISENTAN) (TABLETS) [Concomitant]

REACTIONS (2)
  - Haemoptysis [None]
  - Atrioventricular block [None]
